FAERS Safety Report 7784665-2 (Version None)
Quarter: 2011Q3

REPORT INFORMATION
  Report Type: 
  Country: None (occurrence: None)
  Receive Date: 20110928
  Receipt Date: 20110624
  Transmission Date: 20111222
  Serious: No
  Sender: FDA-Public Use
  Company Number: US-BAYER-2011-056513

PATIENT
  Age: 38 Year
  Sex: Female
  Weight: 77 kg

DRUGS (1)
  1. ALEVE (CAPLET) [Suspect]
     Indication: TOOTHACHE
     Dosage: 3 U, ONCE
     Route: 048
     Dates: start: 20110613, end: 20110623

REACTIONS (1)
  - ABDOMINAL PAIN UPPER [None]
